FAERS Safety Report 7479072 (Version 3)
Quarter: 2013Q1

REPORT INFORMATION
  Report Type: Report from Study
  Country: TR (occurrence: TR)
  Receive Date: 20100716
  Receipt Date: 20130206
  Transmission Date: 20140127
  Serious: Yes (Hospitalization)
  Sender: FDA-Public Use
  Company Number: TR-CELGENEUS-161-20785-10071051

PATIENT
  Age: 67 Year
  Sex: 0

DRUGS (3)
  1. THALIDOMIDE [Suspect]
     Indication: PLASMA CELL MYELOMA
     Dosage: 2 PCS
     Route: 048
     Dates: start: 20080505
  2. MELPHALAN [Suspect]
     Indication: PLASMA CELL MYELOMA
     Route: 065
  3. PREDNISONE [Suspect]
     Indication: PLASMA CELL MYELOMA
     Dosage: 2 PCS
     Route: 065
     Dates: start: 20080505

REACTIONS (1)
  - Urinary tract infection [Recovered/Resolved]
